FAERS Safety Report 23967972 (Version 2)
Quarter: 2024Q3

REPORT INFORMATION
  Report Type: Spontaneous
  Country: US (occurrence: US)
  Receive Date: 20240612
  Receipt Date: 20240701
  Transmission Date: 20241017
  Serious: Yes (Hospitalization)
  Sender: RIGEL PHARMACEUTICALS
  Company Number: US-RIGEL Pharmaceuticals, INC-2024FOS000580

PATIENT

DRUGS (3)
  1. TAVALISSE [Suspect]
     Active Substance: FOSTAMATINIB
     Indication: Immune thrombocytopenia
     Dosage: 150 MG, BID
     Route: 048
  2. TAVALISSE [Suspect]
     Active Substance: FOSTAMATINIB
     Indication: Breast cancer
     Dosage: 200 MG IN THE MORNING AND 100 MG IN THE EVENING, BID
     Route: 048
     Dates: start: 20240501
  3. NPLATE [Concomitant]
     Active Substance: ROMIPLOSTIM
     Indication: Product used for unknown indication
     Dosage: 3 MICROGRAM, ONCE WEEKLY

REACTIONS (7)
  - Hospitalisation [Unknown]
  - Platelet count [Unknown]
  - Oedema peripheral [Unknown]
  - Product use issue [Unknown]
  - Nausea [Unknown]
  - Diarrhoea [Unknown]
  - Madarosis [Unknown]

NARRATIVE: CASE EVENT DATE: 20240101
